FAERS Safety Report 7498979-7 (Version None)
Quarter: 2011Q2

REPORT INFORMATION
  Report Type: 
  Country: None (occurrence: None)
  Receive Date: 20110524
  Receipt Date: 20080830
  Transmission Date: 20111010
  Serious: Yes (Hospitalization, Other)
  Sender: FDA-Public Use
  Company Number: US-BAYER-200832191NA

PATIENT
  Age: 53 Year
  Sex: Male
  Weight: 82 kg

DRUGS (16)
  1. CYMBALTA [Concomitant]
  2. WHOLE BLOOD [Concomitant]
     Dosage: 8 UNITS
     Route: 042
     Dates: start: 20050819
  3. ATENOLOL [Concomitant]
     Dosage: 50 MG
     Route: 048
     Dates: start: 20000101, end: 20050819
  4. PIROXICAM [Concomitant]
     Dosage: 20 MG
     Route: 048
  5. XANAX [Concomitant]
     Dosage: 1 MG
     Route: 048
  6. HEPARIN [Concomitant]
     Dosage: 30,000 UNITS
     Route: 042
     Dates: start: 20050819
  7. AMIODARONE HCL [Concomitant]
     Dosage: UNK
     Route: 042
     Dates: start: 20050823
  8. PLATELETS [Concomitant]
     Dosage: 2 UNITS
     Route: 042
  9. TRASYLOL [Suspect]
     Indication: INTRA-AORTIC BALLOON PLACEMENT
  10. HYDROCODONE [Concomitant]
     Dosage: 10MG/650 MG
     Route: 048
  11. PLASMA [Concomitant]
     Dosage: 2 UNITS
     Route: 042
     Dates: start: 20050819
  12. FENTANYL [Concomitant]
     Dosage: 20 CC
     Route: 042
     Dates: start: 20050819
  13. TRASYLOL [Suspect]
     Indication: CORONARY ARTERY BYPASS
     Dosage: 1 ML INITIAL DOSE
     Route: 042
     Dates: start: 20050819, end: 20050819
  14. VERSED [Concomitant]
     Dosage: 5 MG
     Route: 042
     Dates: start: 20050819
  15. CEFAZOLIN [Concomitant]
     Dosage: 2 GRAM
     Route: 042
     Dates: start: 20050819
  16. DOBUTAMINE HYDROCHLORIDE [Concomitant]
     Dosage: 500 MG/
     Route: 042
     Dates: start: 20050819

REACTIONS (22)
  - ARRHYTHMIA [None]
  - EMOTIONAL DISORDER [None]
  - CEREBROVASCULAR ACCIDENT [None]
  - COGNITIVE DISORDER [None]
  - THYROID DISORDER [None]
  - LIVER DISORDER [None]
  - VENOUS THROMBOSIS [None]
  - TRANSIENT ISCHAEMIC ATTACK [None]
  - EMOTIONAL DISTRESS [None]
  - UNEVALUABLE EVENT [None]
  - LEG AMPUTATION [None]
  - INJURY [None]
  - HYPOXIC-ISCHAEMIC ENCEPHALOPATHY [None]
  - HEPARIN-INDUCED THROMBOCYTOPENIA [None]
  - ATRIAL FIBRILLATION [None]
  - JAUNDICE [None]
  - DIABETES MELLITUS [None]
  - RENAL FAILURE [None]
  - COAGULOPATHY [None]
  - ANAEMIA [None]
  - CARDIAC FAILURE CONGESTIVE [None]
  - MITRAL VALVE INCOMPETENCE [None]
